FAERS Safety Report 25099247 (Version 1)
Quarter: 2025Q1

REPORT INFORMATION
  Report Type: Spontaneous
  Country: US (occurrence: None)
  Receive Date: 20250319
  Receipt Date: 20250319
  Transmission Date: 20250408
  Serious: Yes (Hospitalization)
  Sender: FDA-CTU
  Company Number: None

PATIENT
  Age: 48 Year
  Sex: Female

DRUGS (2)
  1. BETASERON [Suspect]
     Active Substance: INTERFERON BETA-1B
     Indication: Multiple sclerosis
     Dosage: 0.25MG QOD
  2. COVID-19 VACCINE NOS [Suspect]
     Active Substance: COVID-19 VACCINE

REACTIONS (2)
  - Anaemia [None]
  - Multiple sclerosis relapse [None]
